FAERS Safety Report 5310996-1 (Version None)
Quarter: 2007Q2

REPORT INFORMATION
  Report Type: 
  Country: None (occurrence: None)
  Receive Date: 20070430
  Receipt Date: 20070425
  Transmission Date: 20071010
  Serious: Yes (Life-Threatening, Hospitalization)
  Sender: FDA-Public Use
  Company Number: DE-JNJFOC-20070402694

PATIENT
  Sex: Male
  Weight: 75 kg

DRUGS (5)
  1. HALDOL [Suspect]
     Indication: AGITATION
     Route: 042
  2. MADOPAR [Concomitant]
     Route: 048
  3. SIFROL [Concomitant]
     Route: 048
  4. STALEVO 100 [Concomitant]
     Route: 048
  5. NEXIUM [Concomitant]
     Route: 048

REACTIONS (3)
  - DEPRESSED LEVEL OF CONSCIOUSNESS [None]
  - STRIDOR [None]
  - URTICARIA [None]
